FAERS Safety Report 4359118-4 (Version None)
Quarter: 2004Q2

REPORT INFORMATION
  Report Type: 
  Country: None (occurrence: None)
  Receive Date: 20040512
  Receipt Date: 20040426
  Transmission Date: 20050107
  Serious: Yes (Hospitalization)
  Sender: FDA-Public Use
  Company Number: 2004GB01002

PATIENT
  Age: 59 Year
  Sex: Male

DRUGS (3)
  1. ATENOLOL [Suspect]
     Dosage: 50 MG DAILY PO
     Route: 048
     Dates: start: 20040101
  2. ASPIRIN [Concomitant]
  3. FELODIPINE [Concomitant]

REACTIONS (3)
  - BLOOD PRESSURE INCREASED [None]
  - BRADYCARDIA [None]
  - HEART RATE INCREASED [None]
